FAERS Safety Report 5354773-4 (Version None)
Quarter: 2007Q2

REPORT INFORMATION
  Report Type: 
  Country: None (occurrence: None)
  Receive Date: 20070611
  Receipt Date: 20070605
  Transmission Date: 20071010
  Serious: Yes (Hospitalization)
  Sender: FDA-Public Use
  Company Number: 2007US000742

PATIENT
  Age: 43 Year
  Sex: Male
  Weight: 62.7 kg

DRUGS (1)
  1. PROGRAF [Suspect]
     Indication: DRUG USE FOR UNKNOWN INDICATION
     Dosage: 8 MG, ORAL
     Route: 048
     Dates: start: 20060919

REACTIONS (1)
  - PYELONEPHRITIS [None]
